FAERS Safety Report 18637439 (Version 2)
Quarter: 2021Q4

REPORT INFORMATION
  Report Type: Spontaneous
  Country: US (occurrence: US)
  Receive Date: 20201218
  Receipt Date: 20211214
  Transmission Date: 20220303
  Serious: Yes (Other)
  Sender: FDA-Public Use
  Company Number: US-REGENERON PHARMACEUTICALS, INC.-2020-74013

PATIENT

DRUGS (1)
  1. EYLEA [Suspect]
     Active Substance: AFLIBERCEPT
     Indication: Macular degeneration
     Dosage: 2 MG, RIGHT EYE
     Route: 031
     Dates: start: 202005

REACTIONS (4)
  - Cataract [Not Recovered/Not Resolved]
  - Product dose omission issue [Unknown]
  - Delayed dark adaptation [Not Recovered/Not Resolved]
  - Visual impairment [Not Recovered/Not Resolved]
